FAERS Safety Report 12886718 (Version 1)
Quarter: 2016Q4

REPORT INFORMATION
  Report Type: Spontaneous
  Country: ES (occurrence: ES)
  Receive Date: 20161026
  Receipt Date: 20161026
  Transmission Date: 20170207
  Serious: Yes (Other)
  Sender: FDA-Public Use
  Company Number: ES-TEVA-703756ISR

PATIENT
  Age: 33 Year
  Sex: Female

DRUGS (4)
  1. COPAXONE [Suspect]
     Active Substance: GLATIRAMER ACETATE
     Indication: RELAPSING-REMITTING MULTIPLE SCLEROSIS
     Dosage: 20 MILLIGRAM/MILLILITERS DAILY;
     Route: 058
     Dates: start: 2009
  2. HUMALOG KWIKPEN 100 U/ML SOLUCION INYECTABLE, 5 PLUMAS PRECARGADAS DE [Concomitant]
     Indication: TYPE 1 DIABETES MELLITUS
     Dates: start: 1999
  3. EUTIROX 50 MICROGRAMOS COMPRIMIDOS, 100 COMPRIMIDOS [Concomitant]
     Indication: AUTOIMMUNE HYPOTHYROIDISM
     Dosage: 50 MICROGRAM DAILY;
     Dates: start: 2011
  4. TRESIBA 100 U/ML SOLUCION INYECTABLE, 5 PLUMAS PREGARCADAS DE 3 ML [Concomitant]
     Indication: TYPE 1 DIABETES MELLITUS
     Dosage: 3 ML DAILY;
     Dates: start: 201601

REACTIONS (9)
  - Cyst [Unknown]
  - Cold sweat [Unknown]
  - Dizziness [Unknown]
  - Swelling face [Unknown]
  - Rash [Unknown]
  - Cheilitis [Unknown]
  - Dyspnoea [Unknown]
  - Dermatitis contact [Unknown]
  - Tachycardia [Unknown]
